FAERS Safety Report 23734925 (Version 1)
Quarter: 2024Q2

REPORT INFORMATION
  Report Type: Spontaneous
  Country: US (occurrence: US)
  Receive Date: 20240412
  Receipt Date: 20240412
  Transmission Date: 20240716
  Serious: No
  Sender: FDA-Public Use
  Company Number: US-JNJFOC-20240359892

PATIENT
  Age: 8 Decade
  Sex: Female

DRUGS (2)
  1. WOMENS ROGAINE UNSCENTED [Suspect]
     Active Substance: MINOXIDIL
     Indication: Alopecia
     Route: 061
  2. PROLIA [Concomitant]
     Active Substance: DENOSUMAB
     Indication: Scoliosis
     Dosage: IN JANUARY AND JULY
     Route: 065

REACTIONS (4)
  - Application site pruritus [Recovering/Resolving]
  - Pruritus [Recovering/Resolving]
  - Application site dryness [Recovering/Resolving]
  - Alopecia [Unknown]
